FAERS Safety Report 5567091-6 (Version None)
Quarter: 2007Q4

REPORT INFORMATION
  Report Type: 
  Country: None (occurrence: None)
  Receive Date: 20071219
  Receipt Date: 20060802
  Transmission Date: 20080405
  Serious: Yes (Death, Other)
  Sender: FDA-Public Use
  Company Number: US-ROCHE-457928

PATIENT
  Age: 36 Year
  Sex: Female

DRUGS (5)
  1. INTERFERON ALFA [Suspect]
     Route: 065
  2. CISPLATIN [Suspect]
     Route: 065
  3. VINBLASTINE [Suspect]
     Route: 065
  4. DACARBAZINE [Suspect]
     Route: 065
  5. INTERLEUKIN-2 [Suspect]
     Route: 065

REACTIONS (3)
  - DISEASE PROGRESSION [None]
  - MELANOSIS [None]
  - TUMOUR LYSIS SYNDROME [None]
